FAERS Safety Report 7435115-7 (Version None)
Quarter: 2011Q2

REPORT INFORMATION
  Report Type: 
  Country: None (occurrence: None)
  Receive Date: 20110425
  Receipt Date: 20110412
  Transmission Date: 20111010
  Serious: Yes (Hospitalization, Disabling)
  Sender: FDA-Public Use
  Company Number: PHHY2011EC30768

PATIENT
  Sex: Male

DRUGS (4)
  1. DIOVAN [Suspect]
     Dosage: 320 MG, 1 TABLET DAILY
     Route: 048
     Dates: start: 20100901, end: 20101101
  2. MONOBIDE [Concomitant]
  3. CARVEDIL [Concomitant]
  4. DIOVAN [Suspect]
     Indication: HYPERTENSION
     Dosage: 80 MG, 1 TABLET DAILY
     Route: 048
     Dates: start: 20060101, end: 20100901

REACTIONS (5)
  - HEMIPLEGIA [None]
  - FALL [None]
  - THROMBOSIS [None]
  - HEAD INJURY [None]
  - SPEECH DISORDER [None]
